FAERS Safety Report 9235229 (Version 3)
Quarter: 2013Q4

REPORT INFORMATION
  Report Type: Report from Study
  Country: MD (occurrence: MD)
  Receive Date: 20130417
  Receipt Date: 20131106
  Transmission Date: 20140711
  Serious: Yes (Hospitalization)
  Sender: FDA-Public Use
  Company Number: MD-BIOGENIDEC-2013BI012013

PATIENT
  Age: 28 Year
  Sex: Female
  Weight: 79 kg

DRUGS (5)
  1. BG00012 [Suspect]
     Indication: MULTIPLE SCLEROSIS
     Dates: start: 20110725, end: 20130120
  2. BG00012 [Suspect]
     Indication: MULTIPLE SCLEROSIS
     Dates: start: 20130305
  3. DIAZEPAM [Concomitant]
     Dates: start: 20130121, end: 20130213
  4. DEXAMETHASONE [Concomitant]
     Dates: start: 20130121, end: 20130213
  5. CLOZAPINE [Concomitant]

REACTIONS (1)
  - Schizophrenia, catatonic type [Recovered/Resolved]
